FAERS Safety Report 12130599 (Version 1)
Quarter: 2016Q1

REPORT INFORMATION
  Report Type: Spontaneous
  Country: US (occurrence: None)
  Receive Date: 20160229
  Receipt Date: 20160229
  Transmission Date: 20160526
  Serious: Yes (Hospitalization)
  Sender: FDA-Public Use
  Company Number: None

PATIENT
  Sex: Male
  Weight: 97.7 kg

DRUGS (10)
  1. VALCYTE [Concomitant]
     Active Substance: VALGANCICLOVIR HYDROCHLORIDE
  2. COLLOIDAL OATMEAL [Concomitant]
     Active Substance: OATMEAL
  3. SOFOSBUVIR 400 MG GILEAD [Suspect]
     Active Substance: SOFOSBUVIR
     Indication: HEPATITIS C
     Dosage: 400 MG X1/DAY PO
     Route: 048
     Dates: start: 20151018, end: 20151103
  4. DACLATASVIR 60 MG BRISTOL-MYERS SQUIBB [Suspect]
     Active Substance: DACLATASVIR
     Indication: HEPATITIS C
     Dosage: 60 MG X1/DAY PO
     Route: 048
     Dates: start: 20151018, end: 20151103
  5. MAGNESIUM OXIDE. [Concomitant]
     Active Substance: MAGNESIUM OXIDE
  6. TACROLIMUS. [Concomitant]
     Active Substance: TACROLIMUS
  7. KAYEXALATE [Concomitant]
     Active Substance: SODIUM POLYSTYRENE SULFONATE
  8. HYDROXYZINE [Concomitant]
     Active Substance: HYDROXYZINE\HYDROXYZINE HYDROCHLORIDE
  9. PEPCID [Concomitant]
     Active Substance: FAMOTIDINE
  10. OXYCODONE [Concomitant]
     Active Substance: OXYCODONE

REACTIONS (2)
  - Bile duct stenosis [None]
  - Cholangiocarcinoma [None]

NARRATIVE: CASE EVENT DATE: 20151101
